FAERS Safety Report 7934682-4 (Version None)
Quarter: 2011Q4

REPORT INFORMATION
  Report Type: 
  Country: None (occurrence: None)
  Receive Date: 20111122
  Receipt Date: 20111114
  Transmission Date: 20120403
  Serious: Yes (Hospitalization, Disabling)
  Sender: FDA-Public Use
  Company Number: US-MERCK-1108USA00188

PATIENT
  Age: 58 Year
  Sex: Female

DRUGS (3)
  1. VITAMIN D (UNSPECIFIED) [Concomitant]
     Route: 065
     Dates: start: 19800101
  2. FOSAMAX [Suspect]
     Indication: OSTEOPENIA
     Route: 048
     Dates: start: 20020101, end: 20090601
  3. CALCIUM (UNSPECIFIED) [Concomitant]
     Route: 065
     Dates: start: 19800101

REACTIONS (13)
  - POST PROCEDURAL COMPLICATION [None]
  - HEAD INJURY [None]
  - DENTAL CARIES [None]
  - CAROTID ARTERY STENOSIS [None]
  - OSTEOPOROSIS [None]
  - POOR PERSONAL HYGIENE [None]
  - FEMUR FRACTURE [None]
  - TOOTH DISORDER [None]
  - STRESS FRACTURE [None]
  - STOMATITIS [None]
  - LOW TURNOVER OSTEOPATHY [None]
  - ROAD TRAFFIC ACCIDENT [None]
  - HYPERTENSION [None]
